FAERS Safety Report 7460484-1 (Version None)
Quarter: 2011Q2

REPORT INFORMATION
  Report Type: 
  Country: None (occurrence: None)
  Receive Date: 20110505
  Receipt Date: 20110503
  Transmission Date: 20111010
  Serious: Yes (Hospitalization)
  Sender: FDA-Public Use
  Company Number: NL-PFIZER INC-2011095403

PATIENT
  Age: 78 Year
  Sex: Female
  Weight: 65 kg

DRUGS (2)
  1. NEURONTIN [Suspect]
     Indication: EPILEPSY
     Dosage: 600 MG, 3X/DAY
     Dates: start: 20110101, end: 20110202
  2. CAPTOPRIL [Concomitant]
     Dosage: 50 MG, 3X/DAY
     Dates: start: 20110101

REACTIONS (2)
  - SHOCK [None]
  - ORTHOSTATIC HYPOTENSION [None]
